FAERS Safety Report 6844339-9 (Version None)
Quarter: 2010Q3

REPORT INFORMATION
  Report Type: 
  Country: None (occurrence: None)
  Receive Date: 20100715
  Receipt Date: 20100707
  Transmission Date: 20110219
  Serious: Yes (Other)
  Sender: FDA-Public Use
  Company Number: US-ROCHE-714661

PATIENT
  Age: 15 Year
  Sex: Male

DRUGS (3)
  1. AVASTIN [Suspect]
     Indication: GLIOMA
     Route: 065
     Dates: start: 20080801
  2. AVASTIN [Suspect]
     Route: 065
     Dates: start: 20100101
  3. AVASTIN [Suspect]
     Dosage: DATE OF LAST DOSE PRIOR TO SAE: 13 MAY 2010.
     Route: 065
     Dates: start: 20100301

REACTIONS (3)
  - HYPERTENSION [None]
  - MYOSITIS [None]
  - PROTEINURIA [None]
